FAERS Safety Report 24557669 (Version 4)
Quarter: 2025Q1

REPORT INFORMATION
  Report Type: Spontaneous
  Country: US (occurrence: US)
  Receive Date: 20241028
  Receipt Date: 20250117
  Transmission Date: 20250408
  Serious: No
  Sender: THERATECHNOLOGIES
  Company Number: US-THERATECHNOLOGIES INC.-2024-THE-TES-000378

PATIENT

DRUGS (1)
  1. EGRIFTA SV [Suspect]
     Active Substance: TESAMORELIN ACETATE
     Indication: Lipodystrophy acquired
     Dosage: 1.4 MG, QD
     Route: 058
     Dates: start: 20240917

REACTIONS (5)
  - Abdominal distension [Unknown]
  - Injection site bruising [Recovering/Resolving]
  - Injection site pain [Recovered/Resolved]
  - Injection site pain [Recovered/Resolved]
  - Therapeutic product effect incomplete [Unknown]

NARRATIVE: CASE EVENT DATE: 20240917
